FAERS Safety Report 11105514 (Version 2)
Quarter: 2015Q2

REPORT INFORMATION
  Report Type: Spontaneous
  Country: CH (occurrence: CH)
  Receive Date: 20150512
  Receipt Date: 20150517
  Transmission Date: 20150821
  Serious: Yes (Life-Threatening, Hospitalization)
  Sender: FDA-Public Use
  Company Number: CH-UCBSA-2015014676

PATIENT
  Age: 65 Year
  Sex: Male
  Weight: 71 kg

DRUGS (4)
  1. PARACETAMOL [Concomitant]
     Active Substance: ACETAMINOPHEN
     Indication: HEADACHE
     Dosage: 1 DF, 2X/DAY (BID)
     Route: 048
  2. PREVENAR [Suspect]
     Active Substance: PNEUMOCOCCAL 7-VALENT CONJUGATE VACCINE (DIPHTHERIA CRM197 PROTEIN)
     Indication: IMMUNISATION
     Dosage: 1 DF, UNK
     Route: 030
     Dates: start: 20150119, end: 20150119
  3. CIMZIA [Suspect]
     Active Substance: CERTOLIZUMAB PEGOL
     Indication: ANKYLOSING SPONDYLITIS
     Dosage: 1 DF, EV 2 WEEKS(QOW)
     Route: 058
     Dates: start: 201310, end: 201503
  4. ARCOXIA [Concomitant]
     Active Substance: ETORICOXIB
     Indication: HEADACHE
     Dosage: 1 DF, UNK IN THE EVENING (30 MG OR 60 MG, SOMETIMES 90 MG)
     Route: 048

REACTIONS (6)
  - Arteritis [Not Recovered/Not Resolved]
  - Cerebrovascular stenosis [Not Recovered/Not Resolved]
  - Ischaemic cerebral infarction [Not Recovered/Not Resolved]
  - Headache [Recovering/Resolving]
  - Neurological examination abnormal [Not Recovered/Not Resolved]
  - Tremor [Recovered/Resolved]

NARRATIVE: CASE EVENT DATE: 2015
